FAERS Safety Report 17247268 (Version 1)
Quarter: 2020Q1

REPORT INFORMATION
  Report Type: Spontaneous
  Country: US (occurrence: US)
  Receive Date: 20200107
  Receipt Date: 20200107
  Transmission Date: 20200409
  Serious: Yes (Hospitalization)
  Sender: FDA-Public Use
  Company Number: None

PATIENT
  Age: 76 Year
  Sex: Male

DRUGS (13)
  1. ELIQUIS TAB 5 MG [Concomitant]
  2. HUMALOG [Concomitant]
     Active Substance: INSULIN LISPRO
  3. RETACRIT [Suspect]
     Active Substance: EPOETIN ALFA-EPBX
     Indication: PRODUCT USED FOR UNKNOWN INDICATION
     Dosage: ?          OTHER FREQUENCY:MONTHLY;?
     Route: 030
     Dates: start: 20191207
  4. ZOLPIDEM TAB 10 MG [Concomitant]
  5. LANTUS INJ 100/ML [Concomitant]
  6. DILTIAZEM TAB 60 MG [Concomitant]
  7. POT CHLORIDE TAB 20 MEQ ER [Concomitant]
  8. LATANOPROST SOL 0.005% [Concomitant]
  9. CLONIDINE TAB 0.1 MG [Concomitant]
  10. FOLIC ACID TAB 1000 MCG [Concomitant]
  11. BUDESONIDE CAP 3 MG DR [Concomitant]
  12. E-40 CAP 400 UNIT [Concomitant]
  13. HYDRALAZINE TAB 25 MG [Concomitant]

REACTIONS (1)
  - Gastrointestinal haemorrhage [None]
